FAERS Safety Report 19044506 (Version 1)
Quarter: 2021Q1

REPORT INFORMATION
  Report Type: Spontaneous
  Country: US (occurrence: US)
  Receive Date: 20210323
  Receipt Date: 20210323
  Transmission Date: 20210420
  Serious: No
  Sender: FDA-Public Use
  Company Number: US-GLAXOSMITHKLINE-US2021062712

PATIENT
  Sex: Female

DRUGS (1)
  1. NUCALA [Suspect]
     Active Substance: MEPOLIZUMAB
     Indication: ASTHMA
     Dosage: UNK
     Dates: start: 202010

REACTIONS (4)
  - Wrong technique in device usage process [Unknown]
  - Pain in extremity [Not Recovered/Not Resolved]
  - Accidental exposure to product [Unknown]
  - Inappropriate schedule of product administration [Unknown]
